FAERS Safety Report 21313385 (Version 1)
Quarter: 2022Q3

REPORT INFORMATION
  Report Type: Spontaneous
  Country: US (occurrence: US)
  Receive Date: 20220909
  Receipt Date: 20220909
  Transmission Date: 20221027
  Serious: No
  Sender: FDA-Public Use
  Company Number: US-ASTELLAS-2021US033768

PATIENT
  Age: 91 Year
  Sex: Male

DRUGS (1)
  1. XTANDI [Suspect]
     Active Substance: ENZALUTAMIDE
     Indication: Product used for unknown indication
     Route: 048
     Dates: start: 20210724, end: 20210821

REACTIONS (6)
  - Illness [Unknown]
  - Condition aggravated [Unknown]
  - Hypersomnia [Unknown]
  - Memory impairment [Unknown]
  - Asthenia [Unknown]
  - Decreased appetite [Unknown]
